FAERS Safety Report 13022695 (Version 2)
Quarter: 2016Q4

REPORT INFORMATION
  Report Type: Report from Study
  Country: FR (occurrence: FR)
  Receive Date: 20161213
  Receipt Date: 20161223
  Transmission Date: 20170207
  Serious: Yes (Hospitalization)
  Sender: FDA-Public Use
  Company Number: PHHO2016FR017961

PATIENT
  Age: 66 Year
  Sex: Male
  Weight: 78.5 kg

DRUGS (2)
  1. AIN457 [Suspect]
     Active Substance: SECUKINUMAB
     Indication: PSORIASIS
     Dosage: UNK
     Route: 058
     Dates: start: 20121206
  2. PREVISCAN [Concomitant]
     Active Substance: FLUINDIONE
     Indication: PROPHYLAXIS
     Dosage: 30 MG, QD
     Route: 048
     Dates: start: 2006

REACTIONS (1)
  - Chest pain [Recovered/Resolved]

NARRATIVE: CASE EVENT DATE: 20160906
